FAERS Safety Report 15450536 (Version 1)
Quarter: 2018Q4

REPORT INFORMATION
  Report Type: Spontaneous
  Country: NL (occurrence: NL)
  Receive Date: 20181001
  Receipt Date: 20181001
  Transmission Date: 20190204
  Serious: Yes (Other)
  Sender: FDA-Public Use
  Company Number: NL-ACCORD-072780

PATIENT
  Age: 72 Year
  Sex: Female

DRUGS (4)
  1. TRIAMTERENE. [Concomitant]
     Active Substance: TRIAMTERENE
  2. PRAVASTATIN/PRAVASTATIN SODIUM [Concomitant]
  3. CARBIDOPA/LEVODOPA [Suspect]
     Active Substance: CARBIDOPA\LEVODOPA
     Indication: PARKINSON^S DISEASE
     Dosage: 1187.5 MG PER DAY
  4. ENALAPRIL/ENALAPRIL MALEATE [Concomitant]

REACTIONS (2)
  - Vitamin B6 deficiency [Unknown]
  - Polyneuropathy [Unknown]
